FAERS Safety Report 13691539 (Version 3)
Quarter: 2017Q4

REPORT INFORMATION
  Report Type: Spontaneous
  Country: BR (occurrence: BR)
  Receive Date: 20170626
  Receipt Date: 20171026
  Transmission Date: 20180320
  Serious: Yes (Other)
  Sender: FDA-Public Use
  Company Number: PHHY2017BR090798

PATIENT
  Age: 40 Year
  Sex: Female
  Weight: 56 kg

DRUGS (3)
  1. LOPERAMIDE HYDROCHLORIDE. [Suspect]
     Active Substance: LOPERAMIDE HYDROCHLORIDE
     Indication: DIARRHOEA
     Dosage: 2 DF, QD
     Route: 048
     Dates: start: 20170719, end: 20170722
  2. LOPERAMIDE HYDROCHLORIDE. [Suspect]
     Active Substance: LOPERAMIDE HYDROCHLORIDE
     Dosage: 4 MG, UNK
     Route: 048
  3. LOPERAMIDE HYDROCHLORIDE. [Suspect]
     Active Substance: LOPERAMIDE HYDROCHLORIDE
     Dosage: 4 DF, QD
     Route: 048

REACTIONS (19)
  - Swelling [Recovering/Resolving]
  - Brain oedema [Recovering/Resolving]
  - Haematuria [Recovering/Resolving]
  - Depressed level of consciousness [Recovering/Resolving]
  - Intestinal dilatation [Recovering/Resolving]
  - Haematochezia [Recovering/Resolving]
  - Dysuria [Recovering/Resolving]
  - Angioedema [Recovering/Resolving]
  - Oedema mucosal [Recovering/Resolving]
  - Skin disorder [Recovering/Resolving]
  - Renal disorder [Recovering/Resolving]
  - Gastrointestinal disorder [Recovering/Resolving]
  - Pruritus [Recovering/Resolving]
  - Soft tissue disorder [Recovering/Resolving]
  - Diarrhoea [Recovering/Resolving]
  - Headache [Recovering/Resolving]
  - Nervous system disorder [Recovering/Resolving]
  - Abdominal pain [Recovering/Resolving]
  - Dyspepsia [Recovering/Resolving]

NARRATIVE: CASE EVENT DATE: 20170722
